FAERS Safety Report 9528253 (Version 1)
Quarter: 2013Q3

REPORT INFORMATION
  Report Type: Report from Study
  Country: CL (occurrence: CL)
  Receive Date: 20130917
  Receipt Date: 20130917
  Transmission Date: 20140515
  Serious: Yes (Hospitalization)
  Sender: FDA-Public Use
  Company Number: PHHY2013CL102718

PATIENT
  Sex: Female

DRUGS (1)
  1. LEPONEX / CLOZARIL (CLOZAPINE) [Suspect]
     Dosage: 250 MG, QD
     Route: 048

REACTIONS (1)
  - Depression [Recovered/Resolved]
